FAERS Safety Report 6182546-1 (Version None)
Quarter: 2009Q2

REPORT INFORMATION
  Report Type: 
  Country: None (occurrence: None)
  Receive Date: 20090507
  Receipt Date: 20090423
  Transmission Date: 20091009
  Serious: Yes (Hospitalization)
  Sender: FDA-Public Use
  Company Number: FR-PFIZER INC-2009208695

PATIENT

DRUGS (24)
  1. HYDROXYZINE HCL [Suspect]
     Indication: ANXIETY
     Dosage: 25 MG, 1X/DAY
     Route: 048
     Dates: end: 20081112
  2. VANCOMYCIN [Suspect]
     Indication: ABSCESS
     Dosage: UNK MG, UNK
     Route: 042
     Dates: start: 20081028, end: 20081106
  3. FORTUM [Suspect]
     Indication: ABSCESS
     Dosage: 1 G, 3X/DAY
     Route: 042
     Dates: start: 20081028, end: 20081110
  4. INIPOMP [Suspect]
     Dosage: 20 MG, 1X/DAY
     Dates: start: 20081101, end: 20081107
  5. DILTIAZEM HCL [Suspect]
     Dosage: 90 MG, 2X/DAY
     Dates: end: 20081109
  6. PYOSTACINE [Suspect]
     Indication: ABSCESS
     Dosage: 500 MG, UNK
     Dates: start: 20081018, end: 20081028
  7. PENICILLIN G [Suspect]
     Indication: ABSCESS
     Dosage: 40 MILLIONIU, 1X/DAY
     Route: 042
     Dates: start: 20081018, end: 20081028
  8. AMIKLIN [Suspect]
     Indication: ABSCESS
     Dosage: 1.5 G, 1X/DAY
     Route: 042
     Dates: start: 20081028, end: 20081030
  9. DI-ANTALVIC [Suspect]
     Indication: PAIN
     Dosage: UNK DF, UNK
     Dates: start: 20081023, end: 20081029
  10. LEVOTHYROX [Concomitant]
  11. COAPROVEL [Concomitant]
  12. PREVISCAN [Concomitant]
  13. LANTUS [Concomitant]
  14. HUMALOG [Concomitant]
  15. ZOLPIDEM TARTRATE [Concomitant]
  16. DIGOXIN [Concomitant]
     Dosage: UNK
     Dates: start: 20081021
  17. LOVENOX [Concomitant]
     Dosage: UNK
     Dates: start: 20081021
  18. ISOPTIN [Concomitant]
     Dosage: UNK
     Dates: start: 20081026
  19. ZYRTEC [Concomitant]
     Dosage: UNK
     Dates: start: 20081021, end: 20081116
  20. ACTISKENAN [Concomitant]
     Dosage: UNK
     Dates: start: 20081023
  21. ACUPAN [Concomitant]
     Dosage: UNK
     Dates: start: 20081101
  22. DOLIPRANE [Concomitant]
     Dosage: UNK
     Dates: start: 20081019, end: 20081021
  23. DOLIPRANE [Concomitant]
     Dosage: UNK
     Dates: start: 20081106, end: 20081108
  24. DOLIPRANE [Concomitant]
     Dosage: UNK
     Dates: start: 20081112, end: 20081114

REACTIONS (1)
  - ACUTE GENERALISED EXANTHEMATOUS PUSTULOSIS [None]
